FAERS Safety Report 9237033 (Version 2)
Quarter: 2013Q2

REPORT INFORMATION
  Report Type: Report from Study
  Country: JP (occurrence: JP)
  Receive Date: 20130417
  Receipt Date: 20130617
  Transmission Date: 20140414
  Serious: Yes (Hospitalization, Other)
  Sender: FDA-Public Use
  Company Number: PHHY2013JP035794

PATIENT
  Age: 47 Year
  Sex: Male
  Weight: 44 kg

DRUGS (26)
  1. ICL670A [Suspect]
     Indication: APLASIA PURE RED CELL
     Dosage: 500 MG, DAILY
     Route: 048
     Dates: start: 20081016, end: 20081030
  2. ICL670A [Suspect]
     Dosage: 250 MG, DAILY
     Route: 048
     Dates: start: 20081106, end: 20081126
  3. ICL670A [Suspect]
     Dosage: 375 MG, DAILY
     Route: 048
     Dates: start: 20081127, end: 20081224
  4. ICL670A [Suspect]
     Dosage: 500 MG, DAILY
     Route: 048
     Dates: start: 20081225, end: 20090225
  5. ICL670A [Suspect]
     Dosage: 750 MG, DAILY
     Route: 048
     Dates: start: 20090226, end: 20090713
  6. ICL670A [Suspect]
     Dosage: 1000 MG, DAILY
     Route: 048
     Dates: start: 20090714, end: 20090914
  7. ICL670A [Suspect]
     Dosage: 1500 MG, DAILY
     Route: 048
     Dates: start: 20090915, end: 20101221
  8. ICL670A [Suspect]
     Dosage: 1000 MG, DAILY
     Route: 048
     Dates: start: 20101222
  9. NEORAL [Concomitant]
     Indication: APLASIA PURE RED CELL
     Route: 048
  10. URSO [Concomitant]
     Dosage: 500 MG
     Route: 048
     Dates: start: 20081016
  11. THYRADIN S [Concomitant]
     Indication: HYPOTHYROIDISM
     Dosage: 50 UG
     Route: 048
     Dates: start: 20081016
  12. MUCOSTA [Concomitant]
     Dosage: 300 MG
     Route: 048
     Dates: start: 20081016
  13. DEPAS [Concomitant]
     Dosage: 0.5 MG
     Route: 048
     Dates: start: 20081016
  14. HYPEN [Concomitant]
     Dosage: 200 MG
     Route: 048
     Dates: start: 20081016
  15. HYPEN [Concomitant]
     Dosage: 400 MG
     Route: 048
     Dates: end: 20120207
  16. PREDNISOLONE [Concomitant]
     Dosage: 10 MG
     Route: 048
     Dates: start: 20101221
  17. PREDNISOLONE [Concomitant]
     Dosage: 5 MG
     Route: 048
  18. PREDNISOLONE [Concomitant]
     Dosage: 1 MG
     Route: 048
     Dates: end: 20120207
  19. MEIACT [Concomitant]
     Dosage: 300 MG
     Route: 048
     Dates: start: 20120203, end: 20120207
  20. FLOMOX [Concomitant]
     Dosage: 300 MG
     Route: 048
     Dates: start: 20120221
  21. FLOMOX [Concomitant]
     Dosage: 300 MG
     Route: 048
     Dates: end: 20120809
  22. ACTONEL [Concomitant]
     Indication: OSTEOPOROSIS
     Dosage: 17.5 MG
     Route: 048
     Dates: start: 20121010
  23. CONCENTRATED RED CELLS [Concomitant]
     Dosage: 2 UNITS EVERY 10 DAYS
     Dates: start: 20081028, end: 20090226
  24. CONCENTRATED RED CELLS [Concomitant]
     Dosage: 2 UNITS EVERY 7 DAYS
     Dates: start: 20090227, end: 20090331
  25. CONCENTRATED RED CELLS [Concomitant]
     Dosage: 2 UNIT EVERY 10 DAYS
     Dates: start: 20090401, end: 20100122
  26. CONCENTRATED RED CELLS [Concomitant]
     Dosage: 2 UNIT EVERY 10 DAYS
     Dates: start: 20101221, end: 20121226

REACTIONS (2)
  - Foot fracture [Unknown]
  - Cataract [Unknown]
